FAERS Safety Report 7550333-5 (Version None)
Quarter: 2011Q2

REPORT INFORMATION
  Report Type: 
  Country: None (occurrence: None)
  Receive Date: 20110615
  Receipt Date: 20110613
  Transmission Date: 20111010
  Serious: Yes (Hospitalization)
  Sender: FDA-Public Use
  Company Number: US-BRISTOL-MYERS SQUIBB COMPANY-15636178

PATIENT
  Age: 60 Year
  Sex: Male
  Weight: 84 kg

DRUGS (2)
  1. IPILIMUMAB [Suspect]
     Indication: MALIGNANT MELANOMA
     Dosage: LST DSE:04MR11,CY 1-4:10MG/KG OVER 90MIN D1,C5:10MG/KG OVER 90MIN ON D1 Q12 WK 820MG LST DS:15AR11
     Route: 042
     Dates: start: 20110211
  2. LIPITOR [Suspect]

REACTIONS (4)
  - HYPOALBUMINAEMIA [None]
  - BACK PAIN [None]
  - MUSCULAR WEAKNESS [None]
  - HYPERTENSION [None]
